FAERS Safety Report 23335591 (Version 1)
Quarter: 2023Q4

REPORT INFORMATION
  Report Type: Spontaneous
  Country: IT (occurrence: IT)
  Receive Date: 20231225
  Receipt Date: 20231225
  Transmission Date: 20240110
  Serious: Yes (Other)
  Sender: FDA-Public Use
  Company Number: None

PATIENT
  Age: 68 Year
  Sex: Male
  Weight: 96 kg

DRUGS (2)
  1. GEMCITABINE [Suspect]
     Active Substance: GEMCITABINE
     Indication: Lung cancer metastatic
     Dosage: START OF THERAPY 28/12/2022 - V CYCLE D8 - THERAPY EVERY 21 DAYS D1 AND D8
     Dates: start: 20230324, end: 20230324
  2. CISPLATIN [Suspect]
     Active Substance: CISPLATIN
     Indication: Lung cancer metastatic
     Dosage: START OF THERAPY 28/12/2022 - V CYCLE D8 - THERAPY EVERY 21 DAYS D1 AND D8
     Dates: start: 20230324, end: 20230324

REACTIONS (2)
  - Leukopenia [Recovering/Resolving]
  - Neutropenia [Recovering/Resolving]

NARRATIVE: CASE EVENT DATE: 20230414
